FAERS Safety Report 11850202 (Version 1)
Quarter: 2015Q4

REPORT INFORMATION
  Report Type: Spontaneous
  Country: US (occurrence: US)
  Receive Date: 20151218
  Receipt Date: 20151218
  Transmission Date: 20160305
  Serious: No
  Sender: FDA-Public Use
  Company Number: US-JNJFOC-20151202906

PATIENT
  Age: 64 Year
  Sex: Female
  Weight: 54.43 kg

DRUGS (2)
  1. TYLENOL EXTRA STRENGTH [Suspect]
     Active Substance: ACETAMINOPHEN
     Indication: NASOPHARYNGITIS
     Dosage: ONCE
     Route: 048
     Dates: start: 20151201, end: 20151201
  2. TYLENOL EXTRA STRENGTH [Suspect]
     Active Substance: ACETAMINOPHEN
     Indication: HEADACHE
     Dosage: ONCE
     Route: 048
     Dates: start: 20151201, end: 20151201

REACTIONS (2)
  - Incorrect dose administered [Unknown]
  - Product packaging issue [Unknown]
